FAERS Safety Report 24798552 (Version 1)
Quarter: 2025Q1

REPORT INFORMATION
  Report Type: Spontaneous
  Country: KR (occurrence: KR)
  Receive Date: 20250102
  Receipt Date: 20250102
  Transmission Date: 20250409
  Serious: Yes (Death)
  Sender: SANOFI AVENTIS
  Company Number: KR-SA-2025SA000924

PATIENT
  Sex: Male

DRUGS (7)
  1. METFORMIN HYDROCHLORIDE [Suspect]
     Active Substance: METFORMIN HYDROCHLORIDE
     Dosage: BID
     Dates: start: 20220207, end: 20220222
  2. ROSUVASTATIN CALCIUM [Suspect]
     Active Substance: ROSUVASTATIN CALCIUM
     Dosage: UNK, QD
     Dates: start: 20220207, end: 20220222
  3. EZETIMIBE [Suspect]
     Active Substance: EZETIMIBE
     Dosage: 1 PER DAY
     Dates: start: 20220207, end: 20220222
  4. TOUJEO [Suspect]
     Active Substance: INSULIN GLARGINE
     Dosage: 1 PER DAY
     Dates: start: 20220207, end: 20220208
  5. FEBUXOSTAT [Suspect]
     Active Substance: FEBUXOSTAT
  6. SITAGLIPTIN PHOSPHATE [Suspect]
     Active Substance: SITAGLIPTIN PHOSPHATE
     Dosage: 1 PER DAY
     Dates: start: 20220207, end: 20220222
  7. CHOLINE FENOFIBRATE [Suspect]
     Active Substance: CHOLINE FENOFIBRATE

REACTIONS (1)
  - Dyspepsia [Fatal]
